FAERS Safety Report 5393453-6 (Version None)
Quarter: 2007Q3

REPORT INFORMATION
  Report Type: 
  Country: None (occurrence: None)
  Receive Date: 20070723
  Receipt Date: 20060602
  Transmission Date: 20080115
  Serious: No
  Sender: FDA-Public Use
  Company Number: A0607757A

PATIENT
  Age: 67 Year
  Sex: Female

DRUGS (7)
  1. AVANDIA [Suspect]
     Dosage: 4MG PER DAY
     Route: 048
     Dates: start: 20060403
  2. LIPITOR [Concomitant]
  3. LOTREL [Concomitant]
  4. VESICARE [Concomitant]
  5. ADVAIR DISKUS 100/50 [Concomitant]
  6. METFORMIN HCL [Concomitant]
  7. STARLIX [Concomitant]

REACTIONS (1)
  - STOMACH DISCOMFORT [None]
